FAERS Safety Report 5138268-9 (Version None)
Quarter: 2006Q4

REPORT INFORMATION
  Report Type: 
  Country: None (occurrence: None)
  Receive Date: 20061030
  Receipt Date: 20060809
  Transmission Date: 20070319
  Serious: No
  Sender: FDA-Public Use
  Company Number: US-GLAXOSMITHKLINE-A0616025A

PATIENT
  Sex: Female

DRUGS (4)
  1. ADVAIR HFA [Suspect]
     Route: 055
  2. UNKNOWN MEDICATION [Concomitant]
  3. XOPENEX [Concomitant]
     Route: 055
  4. PULMICORT [Concomitant]

REACTIONS (9)
  - CHEST PAIN [None]
  - DRY MOUTH [None]
  - DYSPHONIA [None]
  - HEART RATE INCREASED [None]
  - HEART RATE IRREGULAR [None]
  - MUSCULAR WEAKNESS [None]
  - ORAL PAIN [None]
  - THROAT IRRITATION [None]
  - TREMOR [None]
